FAERS Safety Report 6724695-2 (Version None)
Quarter: 2010Q2

REPORT INFORMATION
  Report Type: 
  Country: None (occurrence: None)
  Receive Date: 20100513
  Receipt Date: 20100503
  Transmission Date: 20101027
  Serious: Yes (Other)
  Sender: FDA-Public Use
  Company Number: US-ABBOTT-09P-163-0577257-00

PATIENT
  Sex: Female

DRUGS (3)
  1. NORVIR [Suspect]
     Indication: ANTIRETROVIRAL THERAPY
     Dosage: PATIENT WAS NOT TAKING MEDICATION AT TIME OF CONCEPTION
     Route: 048
     Dates: start: 20081218
  2. TRUVADA [Suspect]
     Indication: ANTIRETROVIRAL THERAPY
     Dosage: PATIENT WAS NOT TAKING MEDICATION AT TIME OF CONCEPTION
     Route: 048
     Dates: start: 20081218
  3. REYATAZ [Suspect]
     Indication: ANTIRETROVIRAL THERAPY
     Dosage: PATIENT WAS NOT TAKING MEDICATION AT TIME OF CONCEPTION
     Route: 048
     Dates: start: 20081218

REACTIONS (2)
  - GESTATIONAL DIABETES [None]
  - STILLBIRTH [None]
